FAERS Safety Report 13510566 (Version 1)
Quarter: 2017Q2

REPORT INFORMATION
  Report Type: Report from Study
  Country: US (occurrence: US)
  Receive Date: 20170503
  Receipt Date: 20170503
  Transmission Date: 20170830
  Serious: No
  Sender: FDA-Public Use
  Company Number: PHEH2017US012687

PATIENT
  Sex: Female

DRUGS (1)
  1. AFINITOR [Suspect]
     Active Substance: EVEROLIMUS
     Dosage: 10 MG, QD
     Route: 048

REACTIONS (7)
  - Arthralgia [Unknown]
  - Viral upper respiratory tract infection [Unknown]
  - Stomatitis [Unknown]
  - Fatigue [Unknown]
  - Decreased appetite [Unknown]
  - Haemoptysis [Unknown]
  - Weight decreased [Unknown]
